FAERS Safety Report 9573493 (Version 1)
Quarter: 2013Q4

REPORT INFORMATION
  Report Type: Spontaneous
  Country: US (occurrence: US)
  Receive Date: 20131001
  Receipt Date: 20131001
  Transmission Date: 20140711
  Serious: Yes (Hospitalization)
  Sender: FDA-Public Use
  Company Number: US-ASTRAZENECA-2013SE71364

PATIENT
  Age: 76 Year
  Sex: Male
  Weight: 81.6 kg

DRUGS (13)
  1. BRILINTA [Suspect]
     Indication: STENT PLACEMENT
     Route: 048
     Dates: start: 20130807
  2. METOPROLOL [Suspect]
     Route: 048
  3. PROGRAF [Concomitant]
     Indication: TRANSPLANT
  4. MYFORTIC [Concomitant]
     Indication: TRANSPLANT
  5. TAMASULIN [Concomitant]
  6. PREDNISOLONE [Concomitant]
  7. WELLBUTRIN [Concomitant]
  8. IMDUR [Concomitant]
  9. SENSIPAR [Concomitant]
  10. SIMVASTATIN [Concomitant]
  11. NOVOLOG [Concomitant]
     Indication: DIABETES MELLITUS
  12. LANTUS [Concomitant]
     Indication: DIABETES MELLITUS
  13. ASPIRIN [Concomitant]

REACTIONS (6)
  - Dehydration [Unknown]
  - Agitation [Unknown]
  - Confusional state [Not Recovered/Not Resolved]
  - Neuropathy peripheral [Unknown]
  - Memory impairment [Unknown]
  - Headache [Unknown]
